FAERS Safety Report 6280132-6 (Version None)
Quarter: 2009Q3

REPORT INFORMATION
  Report Type: 
  Country: None (occurrence: None)
  Receive Date: 20090723
  Receipt Date: 20090714
  Transmission Date: 20100115
  Serious: Yes (Other)
  Sender: FDA-Public Use
  Company Number: PHEH2009US05008

PATIENT
  Sex: Female

DRUGS (2)
  1. EXELON [Suspect]
     Dosage: UNK, UNK
     Route: 062
  2. NAMENDA [Concomitant]
     Dosage: UNK, UNK

REACTIONS (3)
  - CONTUSION [None]
  - GASTROINTESTINAL DISORDER [None]
  - PRURITUS [None]
